FAERS Safety Report 8296857-7 (Version None)
Quarter: 2012Q2

REPORT INFORMATION
  Report Type: 
  Country: None (occurrence: None)
  Receive Date: 20120419
  Receipt Date: 20120411
  Transmission Date: 20120825
  Serious: Yes (Hospitalization)
  Sender: FDA-Public Use
  Company Number: US-BIOGENIDEC-2011BI030903

PATIENT
  Sex: Male

DRUGS (1)
  1. TYSABRI [Suspect]
     Indication: MULTIPLE SCLEROSIS
     Route: 042
     Dates: start: 20100518, end: 20120126

REACTIONS (4)
  - BACTERIAL DISEASE CARRIER [None]
  - OSTEOMYELITIS [None]
  - WOUND INFECTION STAPHYLOCOCCAL [None]
  - LOCALISED INFECTION [None]
